FAERS Safety Report 18541948 (Version 1)
Quarter: 2020Q4

REPORT INFORMATION
  Report Type: Spontaneous
  Country: US (occurrence: US)
  Receive Date: 20201125
  Receipt Date: 20201125
  Transmission Date: 20210114
  Serious: No
  Sender: FDA-Public Use
  Company Number: US-ACCORD-196616

PATIENT
  Age: 35 Year
  Sex: Female

DRUGS (1)
  1. BUPROPION ACCORD [Suspect]
     Active Substance: BUPROPION HYDROCHLORIDE
     Indication: DEPRESSION
     Dosage: STRENGTH 300 MG
     Route: 048
     Dates: start: 20200722

REACTIONS (2)
  - Product odour abnormal [Unknown]
  - Nausea [Recovered/Resolved]
